FAERS Safety Report 5820592-5 (Version None)
Quarter: 2008Q3

REPORT INFORMATION
  Report Type: 
  Country: None (occurrence: None)
  Receive Date: 20080724
  Receipt Date: 20071119
  Transmission Date: 20090109
  Serious: Yes (Hospitalization)
  Sender: FDA-Public Use
  Company Number: A0695162A

PATIENT
  Age: 81 Year
  Sex: Female

DRUGS (9)
  1. AVANDIA [Suspect]
     Dosage: 4MG PER DAY
     Route: 048
     Dates: end: 20070101
  2. GLYBURIDE [Concomitant]
     Dosage: 5MG PER DAY
  3. METHOTREXATE [Concomitant]
  4. FOSAMAX [Concomitant]
  5. PLAVIX [Concomitant]
  6. LIPITOR [Concomitant]
  7. LYRICA [Concomitant]
  8. LOPID [Concomitant]
  9. ENALAPRIL MALEATE [Concomitant]

REACTIONS (1)
  - BLOOD GLUCOSE DECREASED [None]
